FAERS Safety Report 7148649-X (Version None)
Quarter: 2010Q4

REPORT INFORMATION
  Report Type: 
  Country: None (occurrence: None)
  Receive Date: 20101209
  Receipt Date: 20101130
  Transmission Date: 20110411
  Serious: No
  Sender: FDA-Public Use
  Company Number: US-B.I. PHARMACEUTICALS,INC./RIDGEFIELD-2010-BP-13524BP

PATIENT
  Age: 61 Year
  Sex: Female

DRUGS (12)
  1. SPIRIVA [Suspect]
     Dates: start: 20090101
  2. ALVESCO [Suspect]
     Indication: ASTHMA
     Route: 055
     Dates: start: 20090601
  3. ALVESCO [Suspect]
     Indication: CHRONIC OBSTRUCTIVE PULMONARY DISEASE
  4. ASMANEX TWISTHALER [Suspect]
     Dates: start: 20090101
  5. URIBEL [Suspect]
     Dates: start: 20101001
  6. ADVIL [Concomitant]
  7. ALBUTEROL [Concomitant]
  8. CENTRUM SILVER [Concomitant]
  9. FISH OIL [Concomitant]
  10. VICODIN [Concomitant]
  11. PREDNISONE [Concomitant]
     Dates: start: 20090601
  12. METHENAMINE TAB [Concomitant]
     Dates: start: 20101001

REACTIONS (4)
  - ARTHRALGIA [None]
  - ASTHMA [None]
  - DRUG INEFFECTIVE [None]
  - DYSPNOEA [None]
